FAERS Safety Report 7703387-7 (Version None)
Quarter: 2011Q3

REPORT INFORMATION
  Report Type: 
  Country: None (occurrence: None)
  Receive Date: 20110823
  Receipt Date: 20110816
  Transmission Date: 20111222
  Serious: Yes (Other)
  Sender: FDA-Public Use
  Company Number: BR-B.I. PHARMACEUTICALS,INC./RIDGEFIELD-2011-BR-00793BR

PATIENT
  Sex: Female

DRUGS (3)
  1. VASTAREL [Concomitant]
     Indication: ISCHAEMIA
  2. MICARDIS [Suspect]
     Indication: BLOOD PRESSURE INCREASED
     Dosage: 80 MG
     Route: 048
     Dates: start: 20110803
  3. CARVEDILOL [Concomitant]
     Indication: CARDIAC DISORDER

REACTIONS (12)
  - BLOOD PRESSURE INCREASED [None]
  - COLD SWEAT [None]
  - DIARRHOEA [None]
  - HYPOAESTHESIA [None]
  - GASTRIC DILATATION [None]
  - NODULE [None]
  - DIZZINESS [None]
  - FLATULENCE [None]
  - DYSPNOEA [None]
  - VOMITING [None]
  - PAIN [None]
  - PYREXIA [None]
